FAERS Safety Report 5675000-4 (Version None)
Quarter: 2008Q1

REPORT INFORMATION
  Report Type: 
  Country: None (occurrence: None)
  Receive Date: 20080320
  Receipt Date: 20080312
  Transmission Date: 20080703
  Serious: Yes (Hospitalization)
  Sender: FDA-Public Use
  Company Number: US-ASTRAZENECA-2008UW05062

PATIENT
  Sex: Male

DRUGS (2)
  1. SEROQUEL [Suspect]
     Dosage: OFF FOR 5 DAYS
     Route: 048
  2. SEROQUEL [Suspect]
     Route: 048

REACTIONS (4)
  - AKATHISIA [None]
  - ILL-DEFINED DISORDER [None]
  - RESTLESSNESS [None]
  - TACHYCARDIA [None]
